FAERS Safety Report 6864186-1 (Version None)
Quarter: 2010Q3

REPORT INFORMATION
  Report Type: 
  Country: None (occurrence: None)
  Receive Date: 20100721
  Receipt Date: 20080318
  Transmission Date: 20110219
  Serious: No
  Sender: FDA-Public Use
  Company Number: US-PFIZER INC-2008024762

PATIENT
  Sex: Male
  Weight: 90.9 kg

DRUGS (5)
  1. CHANTIX [Suspect]
     Indication: SMOKING CESSATION THERAPY
     Route: 048
     Dates: start: 20080202, end: 20080301
  2. OMEPRAZOLE [Concomitant]
  3. LISINOPRIL [Concomitant]
  4. TAMSULOSIN HYDROCHLORIDE [Concomitant]
  5. LOVASTATIN [Concomitant]

REACTIONS (3)
  - ANXIETY [None]
  - MEDICATION ERROR [None]
  - NAUSEA [None]
